FAERS Safety Report 13799620 (Version 1)
Quarter: 2017Q3

REPORT INFORMATION
  Report Type: Spontaneous
  Country: US (occurrence: US)
  Receive Date: 20170727
  Receipt Date: 20170727
  Transmission Date: 20171127
  Serious: No
  Sender: FDA-Public Use
  Company Number: US-JNJFOC-20170518892

PATIENT
  Age: 73 Year
  Sex: Female

DRUGS (2)
  1. WOMENS ROGAINE UNSCENTED [Suspect]
     Active Substance: MINOXIDIL
     Indication: ALOPECIA
     Dosage: QUATER AND HALF CAPFUL
     Route: 061
     Dates: start: 20170401
  2. WOMENS ROGAINE UNSCENTED [Suspect]
     Active Substance: MINOXIDIL
     Route: 061

REACTIONS (4)
  - Underdose [Unknown]
  - Product formulation issue [Unknown]
  - Inappropriate schedule of drug administration [Unknown]
  - Contraindicated product administered [Unknown]
